FAERS Safety Report 9298814 (Version 1)
Quarter: 2013Q2

REPORT INFORMATION
  Report Type: Spontaneous
  Country: NL (occurrence: NL)
  Receive Date: 20130520
  Receipt Date: 20130520
  Transmission Date: 20140414
  Serious: Yes (Death, Other)
  Sender: FDA-Public Use
  Company Number: NL-TEVA-403857ISR

PATIENT
  Age: 48 Year
  Sex: Female

DRUGS (9)
  1. METHOTREXAAT TABLET 10MG [Suspect]
     Indication: RHEUMATOID ARTHRITIS
     Dosage: 1 TIME A WEEK 1.5 PIECES
     Route: 048
     Dates: start: 2003
  2. ENBREL MYCLIC INJVLST 50MG/ML PEN 1ML [Interacting]
     Indication: RHEUMATOID ARTHRITIS
     Route: 058
     Dates: start: 20100721
  3. AMLODIPINE TABLET 5MG (BESILAAT) [Concomitant]
     Dosage: 5 MILLIGRAM DAILY;
     Route: 048
     Dates: start: 20121203, end: 20130403
  4. METOPROLOL TABLET MGA 100MG (SUCCINAAT) [Concomitant]
     Dosage: 100 MILLIGRAM DAILY;
     Route: 048
     Dates: start: 20121119, end: 20130403
  5. AMITRIPTYLINE TABLET 25MG (HCL) [Concomitant]
     Dosage: 25 MILLIGRAM DAILY;
     Route: 048
     Dates: start: 20060125, end: 20130403
  6. ETHINYLESTRADIOL/LEVONORGESTREL TABLET 30/150UG [Concomitant]
     Route: 048
     Dates: start: 20071220, end: 20130403
  7. OMEPRAZOL CAPSULE MSR 20MG [Concomitant]
     Dosage: 20 MILLIGRAM DAILY;
     Route: 048
     Dates: start: 20050802, end: 20130403
  8. DICLOFENAC-NATRIUM TABLET MSR 50MG [Concomitant]
     Dosage: 150 MILLIGRAM DAILY;
     Route: 048
     Dates: start: 20081222, end: 20130403
  9. FOLIUMZUUR TABLET 5MG [Concomitant]
     Route: 048
     Dates: start: 20040624, end: 20130403

REACTIONS (3)
  - Sepsis [Fatal]
  - Pneumonia streptococcal [Fatal]
  - Drug interaction [Unknown]
